FAERS Safety Report 9528537 (Version 1)
Quarter: 2013Q1

REPORT INFORMATION
  Report Type: Spontaneous
  Country: US (occurrence: None)
  Receive Date: 20130327
  Receipt Date: 20130327
  Transmission Date: 20140127
  Serious: Yes (Other)
  Sender: FDA-Public Use
  Company Number: 2012-2016

PATIENT
  Age: 39 Year
  Sex: Female
  Weight: 117 kg

DRUGS (4)
  1. SOMATULINE DEPOT [Suspect]
     Indication: ACROMEGALY
     Dosage: 60MG (60MG, 1 IN 28D), SUBCUTANEOUS
     Route: 058
     Dates: start: 20110712
  2. LISINOPRIL (LISINOPRIL) [Concomitant]
  3. MOTRIN (IBUPROFEN) [Concomitant]
  4. COMPAZINE (PROCHLORPERAZINE MALEATE) [Concomitant]

REACTIONS (1)
  - Autoimmune thyroiditis [None]
